FAERS Safety Report 15930742 (Version 1)
Quarter: 2019Q1

REPORT INFORMATION
  Report Type: Spontaneous
  Country: IN (occurrence: IN)
  Receive Date: 20190207
  Receipt Date: 20190207
  Transmission Date: 20190417
  Serious: Yes (Hospitalization, Other)
  Sender: FDA-Public Use
  Company Number: IN-ACCORD-105158

PATIENT
  Age: 55 Year
  Sex: Male

DRUGS (7)
  1. CLOPIDOGREL [Suspect]
     Active Substance: CLOPIDOGREL BISULFATE
     Indication: ANTIPLATELET THERAPY
  2. ATORVASTATIN [Concomitant]
     Active Substance: ATORVASTATIN
     Indication: ACUTE MYOCARDIAL INFARCTION
  3. ISOSORBIDE. [Concomitant]
     Active Substance: ISOSORBIDE
     Indication: ACUTE MYOCARDIAL INFARCTION
     Dosage: 20
  4. ACETYLSALICYLIC ACID [Suspect]
     Active Substance: ASPIRIN
     Indication: ANTIPLATELET THERAPY
  5. METOPROLOL. [Concomitant]
     Active Substance: METOPROLOL
     Indication: ACUTE MYOCARDIAL INFARCTION
  6. METFORMIN [Concomitant]
     Active Substance: METFORMIN HYDROCHLORIDE
     Indication: TYPE 2 DIABETES MELLITUS
  7. HEPARIN [Suspect]
     Active Substance: HEPARIN SODIUM
     Indication: ACUTE MYOCARDIAL INFARCTION

REACTIONS (1)
  - Haemoptysis [Recovering/Resolving]
